FAERS Safety Report 8924079 (Version 1)
Quarter: 2012Q4

REPORT INFORMATION
  Report Type: Spontaneous
  Country: US (occurrence: None)
  Receive Date: 20121127
  Receipt Date: 20121127
  Transmission Date: 20130627
  Serious: Yes (Life-Threatening, Hospitalization, Disabling, Congenital Anomaly, Other)
  Sender: FDA-Public Use
  Company Number: None

PATIENT
  Age: 32 Year
  Sex: Female
  Weight: 65.77 kg

DRUGS (2)
  1. METHYLPREDNISOLONE [Suspect]
     Indication: CERVICAL DISC HERNIATION
     Dates: start: 20120921
  2. METHYLPREDNISOLONE [Suspect]
     Indication: AUTOMOBILE ACCIDENT
     Dates: start: 20120921

REACTIONS (2)
  - Product contamination microbial [None]
  - No adverse event [None]
